FAERS Safety Report 17988712 (Version 2)
Quarter: 2021Q1

REPORT INFORMATION
  Report Type: Spontaneous
  Country: SE (occurrence: SE)
  Receive Date: 20200707
  Receipt Date: 20210107
  Transmission Date: 20210419
  Serious: Yes (Hospitalization, Other)
  Sender: FDA-Public Use
  Company Number: SE-COLLEGIUM PHARMACEUTICAL, INC.-SE-2020COL000477

PATIENT
  Age: 45 Year
  Sex: Male

DRUGS (8)
  1. VOXRA [Suspect]
     Active Substance: BUPROPION HYDROCHLORIDE
     Dosage: UNK
  2. VOXRA [Suspect]
     Active Substance: BUPROPION HYDROCHLORIDE
     Dosage: 150 MG, 1X/DAY
     Dates: end: 202004
  3. LYRICA [Suspect]
     Active Substance: PREGABALIN
     Indication: PRODUCT USED FOR UNKNOWN INDICATION
     Dosage: 100 MG, 1X/WEEK
     Dates: start: 20200306
  4. PREGABALIN. [Suspect]
     Active Substance: PREGABALIN
     Indication: PRODUCT USED FOR UNKNOWN INDICATION
     Dosage: 200 MG
     Dates: start: 20200320
  5. NUCYNTA ER [Suspect]
     Active Substance: TAPENTADOL HYDROCHLORIDE
     Indication: PAIN
     Dosage: UNK
     Route: 048
  6. NUCYNTA ER [Suspect]
     Active Substance: TAPENTADOL HYDROCHLORIDE
     Dosage: 50 MG, 2X/DAY
     Dates: end: 202004
  7. VOXRA [Suspect]
     Active Substance: BUPROPION HYDROCHLORIDE
     Indication: DEPRESSION
     Dosage: 150 MG, 1/2 DAYS
  8. LYRICA [Suspect]
     Active Substance: PREGABALIN
     Dosage: 200 MG

REACTIONS (5)
  - Treatment noncompliance [Unknown]
  - Syncope [Unknown]
  - Overdose [Unknown]
  - Drug interaction [Unknown]
  - Unresponsive to stimuli [Unknown]
